FAERS Safety Report 4398078-7 (Version None)
Quarter: 2004Q3

REPORT INFORMATION
  Report Type: 
  Country: None (occurrence: None)
  Receive Date: 20040713
  Receipt Date: 20040629
  Transmission Date: 20050211
  Serious: Yes (Death)
  Sender: FDA-Public Use
  Company Number: PL-JNJFOC-20040701710

PATIENT
  Age: 40 Year
  Sex: Male

DRUGS (1)
  1. PARACETAMOL (PARACETAMOL) [Suspect]

REACTIONS (5)
  - ALCOHOL WITHDRAWAL SYNDROME [None]
  - ALCOHOLISM [None]
  - HEPATIC FAILURE [None]
  - HEPATIC STEATOSIS [None]
  - INFLAMMATION [None]
